APPROVED DRUG PRODUCT: LETROZOLE
Active Ingredient: LETROZOLE
Strength: 2.5MG
Dosage Form/Route: TABLET;ORAL
Application: A090934 | Product #001 | TE Code: AB
Applicant: ACCORD HEALTHCARE INC
Approved: Jun 3, 2011 | RLD: No | RS: No | Type: RX